FAERS Safety Report 4491810-3 (Version None)
Quarter: 2004Q4

REPORT INFORMATION
  Report Type: 
  Country: None (occurrence: None)
  Receive Date: 20041101
  Receipt Date: 20041006
  Transmission Date: 20050328
  Serious: Yes (Hospitalization)
  Sender: FDA-Public Use
  Company Number: SUSI-2004-00663

PATIENT
  Age: 31 Year
  Sex: Male

DRUGS (1)
  1. PENTASA [Suspect]
     Dosage: 3 G, DAILY, ORAL
     Route: 048

REACTIONS (1)
  - NEPHRITIS INTERSTITIAL [None]
